FAERS Safety Report 16114843 (Version 1)
Quarter: 2019Q1

REPORT INFORMATION
  Report Type: Spontaneous
  Country: FR (occurrence: FR)
  Receive Date: 20190325
  Receipt Date: 20190325
  Transmission Date: 20190418
  Serious: Yes (Hospitalization, Other)
  Sender: FDA-Public Use
  Company Number: INDV-118346-2019

PATIENT
  Age: 31 Year
  Sex: Male

DRUGS (2)
  1. BUPRENORPHINE. [Suspect]
     Active Substance: BUPRENORPHINE
     Indication: PRODUCT USED FOR UNKNOWN INDICATION
     Dosage: UNK
     Route: 042
  2. SKENAN [Suspect]
     Active Substance: MORPHINE SULFATE
     Indication: PRODUCT USED FOR UNKNOWN INDICATION
     Dosage: 200 MILLIGRAM, QD
     Route: 042

REACTIONS (10)
  - Anxiety [Unknown]
  - Drug withdrawal syndrome [Unknown]
  - Decreased appetite [Unknown]
  - Tremor [Unknown]
  - Intentional misuse of drug delivery system [Not Recovered/Not Resolved]
  - Asthenia [Unknown]
  - Myalgia [Unknown]
  - Drug detoxification [Not Recovered/Not Resolved]
  - Dependence [Not Recovered/Not Resolved]
  - Intentional product use issue [Unknown]
